FAERS Safety Report 9014711 (Version 1)
Quarter: 2013Q1

REPORT INFORMATION
  Report Type: Spontaneous
  Country: DE (occurrence: DE)
  Receive Date: 20130115
  Receipt Date: 20130115
  Transmission Date: 20140127
  Serious: Yes (Other)
  Sender: FDA-Public Use
  Company Number: DE-MERCK-2011SP059947

PATIENT
  Age: 65 Year
  Sex: Male
  Weight: 112 kg

DRUGS (3)
  1. AERIUS [Suspect]
     Indication: ASTHMA
     Dosage: 5 MG, UNK
     Dates: start: 2004
  2. SINGULAIR [Suspect]
     Indication: ASTHMA
     Dosage: 10 MG, QD
     Dates: start: 20111117
  3. INEGY [Concomitant]
     Indication: LIPID METABOLISM DISORDER
     Dosage: UPDATE (06FEB2012): 10-20 MG
     Dates: start: 2010

REACTIONS (2)
  - Polyneuropathy [Not Recovered/Not Resolved]
  - Intervertebral disc protrusion [Unknown]
